FAERS Safety Report 8900697 (Version 1)
Quarter: 2012Q4

REPORT INFORMATION
  Report Type: 
  Country: CA (occurrence: CA)
  Receive Date: 20121109
  Receipt Date: 20121109
  Transmission Date: 20130627
  Serious: Yes (Death, Other)
  Sender: FDA-Public Use
  Company Number: PHHO2005CA08010

PATIENT
  Sex: Male

DRUGS (3)
  1. SANDOSTATIN LAR (PATIENT BASIS) [Suspect]
     Indication: CARCINOID TUMOUR
     Dosage: 40 mg, UNK
     Dates: start: 20040809, end: 20050908
  2. SANDOSTATIN LAR (PATIENT BASIS) [Suspect]
     Dosage: 50 mg, UNK
     Dates: end: 20050908
  3. MORPHINE [Concomitant]

REACTIONS (18)
  - Death [Fatal]
  - Hypotension [Unknown]
  - Weight decreased [Unknown]
  - Pleural effusion [Unknown]
  - Lower respiratory tract infection [Unknown]
  - Dyspnoea [Unknown]
  - Cough [Unknown]
  - Malignant neoplasm progression [Unknown]
  - Hepatic enzyme increased [Unknown]
  - Tachypnoea [Unknown]
  - Asthenia [Unknown]
  - Frequent bowel movements [Unknown]
  - Nausea [Unknown]
  - Abdominal pain upper [Unknown]
  - Abdominal pain [Unknown]
  - Fatigue [Unknown]
  - Injection site pain [Unknown]
  - Diarrhoea [Unknown]
